FAERS Safety Report 21283593 (Version 1)
Quarter: 2022Q3

REPORT INFORMATION
  Report Type: Spontaneous
  Country: US (occurrence: None)
  Receive Date: 20220901
  Receipt Date: 20220901
  Transmission Date: 20221026
  Serious: Yes (Hospitalization)
  Sender: FDA-Public Use
  Company Number: None

PATIENT
  Sex: Female

DRUGS (4)
  1. PROLIA [Suspect]
     Active Substance: DENOSUMAB
     Indication: Senile osteoporosis
     Route: 058
     Dates: start: 20180109
  2. ATENOLOL [Concomitant]
     Active Substance: ATENOLOL
  3. DOXAZOSIN [Concomitant]
     Active Substance: DOXAZOSIN MESYLATE
  4. FELODIPINE TAB [Concomitant]

REACTIONS (2)
  - Intestinal obstruction [None]
  - Cholelithiasis [None]
